FAERS Safety Report 4433320-5 (Version None)
Quarter: 2004Q3

REPORT INFORMATION
  Report Type: 
  Country: None (occurrence: None)
  Receive Date: 20040824
  Receipt Date: 20040808
  Transmission Date: 20050211
  Serious: Yes (Hospitalization)
  Sender: FDA-Public Use
  Company Number: 04P-013-0268649-00

PATIENT
  Age: 46 Year
  Sex: Female
  Weight: 50 kg

DRUGS (3)
  1. KALETRA [Suspect]
     Indication: HIV INFECTION
     Dosage: 3 CAPSULES, 2 IN 1 D, PER ORAL
     Route: 048
     Dates: start: 20040808, end: 20040201
  2. LAMIVUDINE [Concomitant]
  3. DIDANOSINE [Concomitant]

REACTIONS (2)
  - FACIAL PALSY [None]
  - HERPES ZOSTER [None]
